FAERS Safety Report 9631822 (Version 2)
Quarter: 2013Q4

REPORT INFORMATION
  Report Type: Spontaneous
  Country: US (occurrence: US)
  Receive Date: 20131018
  Receipt Date: 20131022
  Transmission Date: 20140711
  Serious: Yes (Other)
  Sender: FDA-Public Use
  Company Number: US-RB-058707-13

PATIENT
  Age: 63 Year
  Sex: Female

DRUGS (1)
  1. DELSYM ADULT GRAPE LIQUID [Suspect]
     Indication: COUGH
     Dosage: TOOK 10 ML OF PRODUCT ONCE ON 28-SEP-2013.
     Route: 048
     Dates: start: 20130928

REACTIONS (3)
  - Syncope [Recovered/Resolved]
  - Contraindication to medical treatment [Recovered/Resolved]
  - Vomiting [Recovered/Resolved]
